FAERS Safety Report 15020406 (Version 1)
Quarter: 2018Q2

REPORT INFORMATION
  Report Type: Spontaneous
  Country: US (occurrence: US)
  Receive Date: 20180531
  Receipt Date: 20180531
  Transmission Date: 20180711
  Serious: No
  Sender: FDA-Public Use
  Company Number: None

PATIENT
  Age: 71 Year
  Sex: Female
  Weight: 65.25 kg

DRUGS (13)
  1. LUTEIN [Concomitant]
     Active Substance: LUTEIN
  2. BELSOMRA [Suspect]
     Active Substance: SUVOREXANT
     Indication: INSOMNIA
     Dosage: ?          QUANTITY:1 CAPSULE(S);?
     Route: 048
     Dates: start: 20180522, end: 20180526
  3. ALPRAZOLAM. [Concomitant]
     Active Substance: ALPRAZOLAM
  4. LIPITOR [Concomitant]
     Active Substance: ATORVASTATIN CALCIUM
  5. NEXIUM [Concomitant]
     Active Substance: ESOMEPRAZOLE MAGNESIUM
  6. DYMISTA [Concomitant]
     Active Substance: AZELASTINE HYDROCHLORIDE\FLUTICASONE PROPIONATE
  7. AMLODIPINE [Concomitant]
     Active Substance: AMLODIPINE BESYLATE
  8. KRILL OIL [Concomitant]
     Active Substance: DIETARY SUPPLEMENT
  9. CALCITONIN-SALMON [Concomitant]
     Active Substance: CALCITONIN SALMON
  10. COQ10 [Concomitant]
     Active Substance: UBIDECARENONE
  11. L-THYROXINE [Concomitant]
     Active Substance: LEVOTHYROXINE
  12. CALTRATE [Concomitant]
     Active Substance: CALCIUM CARBONATE
  13. VITAMIN D [Concomitant]
     Active Substance: CHOLECALCIFEROL

REACTIONS (4)
  - Nightmare [None]
  - Hallucination [None]
  - Drug ineffective [None]
  - Middle insomnia [None]

NARRATIVE: CASE EVENT DATE: 20180525
